FAERS Safety Report 20467154 (Version 2)
Quarter: 2022Q1

REPORT INFORMATION
  Report Type: Spontaneous
  Country: US (occurrence: None)
  Receive Date: 20220214
  Receipt Date: 20220309
  Transmission Date: 20220423
  Serious: No
  Sender: FDA-Public Use
  Company Number: 2022A063001

PATIENT
  Age: 859 Month
  Sex: Female

DRUGS (2)
  1. PULMICORT FLEXHALER [Suspect]
     Active Substance: BUDESONIDE
     Indication: Asthma
     Dosage: 90MCG, 60 ACTUATION INHALER TAKEN AS 2 PUFFS TWICE A DAY.
     Route: 055
     Dates: start: 20220123
  2. PULMICORT FLEXHALER [Suspect]
     Active Substance: BUDESONIDE
     Indication: Asthma
     Dosage: 90MCG, 60 ACTUATION INHALER TAKEN AS 2 PUFFS TWICE A DAY.
     Route: 055
     Dates: start: 20220123

REACTIONS (7)
  - Foreign body in throat [Recovered/Resolved]
  - Cough [Recovered/Resolved]
  - Oropharyngeal discomfort [Recovered/Resolved]
  - Device use issue [Unknown]
  - Incorrect dose administered by device [Unknown]
  - Device issue [Unknown]
  - Product taste abnormal [Unknown]

NARRATIVE: CASE EVENT DATE: 20220101
